FAERS Safety Report 7498486-1 (Version None)
Quarter: 2011Q2

REPORT INFORMATION
  Report Type: 
  Country: None (occurrence: None)
  Receive Date: 20110516
  Receipt Date: 20110503
  Transmission Date: 20111010
  Serious: Yes (Hospitalization)
  Sender: FDA-Public Use
  Company Number: 2011MA004890

PATIENT
  Age: 34 Year
  Sex: Female

DRUGS (1)
  1. BETAMETHASONE DIPROPIONATE [Suspect]
     Dosage: 2.5 MG; ;OTIC
     Dates: start: 20061201

REACTIONS (4)
  - FATIGUE [None]
  - CUSHING'S SYNDROME [None]
  - HYPOGEUSIA [None]
  - ALOPECIA [None]
